FAERS Safety Report 21653014 (Version 1)
Quarter: 2022Q4

REPORT INFORMATION
  Report Type: Spontaneous
  Country: JP (occurrence: JP)
  Receive Date: 20221128
  Receipt Date: 20221128
  Transmission Date: 20230113
  Serious: Yes (Other)
  Sender: FDA-Public Use
  Company Number: JP-ASTELLAS-2022JP016903

PATIENT
  Sex: Male

DRUGS (2)
  1. LINACLOTIDE [Suspect]
     Active Substance: LINACLOTIDE
     Indication: Constipation
     Dosage: 0.5 MG, QD
  2. Takeda Kampo Benpiyaku [Concomitant]
     Dosage: UNK

REACTIONS (1)
  - Urinary retention [Recovering/Resolving]
